FAERS Safety Report 24997487 (Version 3)
Quarter: 2025Q4

REPORT INFORMATION
  Report Type: Report from Study
  Country: JP (occurrence: JP)
  Receive Date: 20250222
  Receipt Date: 20251027
  Transmission Date: 20260118
  Serious: Yes (Hospitalization, Other)
  Sender: AMGEN
  Company Number: JP-Vifor (International) Inc.-VIT-2024-07882

PATIENT
  Age: 82 Year
  Sex: Male
  Weight: 56.4 kg

DRUGS (118)
  1. AVACOPAN [Suspect]
     Active Substance: AVACOPAN
     Indication: Microscopic polyangiitis
     Dosage: 30 MG, BID
     Route: 048
     Dates: start: 20230726, end: 20250523
  2. AVACOPAN [Suspect]
     Active Substance: AVACOPAN
     Dosage: 30 MG, BID
     Route: 048
     Dates: start: 20250708
  3. VENILON [Suspect]
     Active Substance: HUMAN IMMUNOGLOBULIN G
     Indication: Neuropathy peripheral
     Dosage: UNK
     Route: 040
     Dates: end: 20240101
  4. RITUXIMAB [Suspect]
     Active Substance: RITUXIMAB
     Indication: Microscopic polyangiitis
     Dosage: 580 MG
     Route: 040
     Dates: start: 20231026, end: 20231026
  5. RITUXIMAB [Suspect]
     Active Substance: RITUXIMAB
     Dosage: 580 MG
     Route: 040
     Dates: start: 20231102, end: 20231102
  6. RITUXIMAB [Suspect]
     Active Substance: RITUXIMAB
     Dosage: 580 MG
     Route: 040
     Dates: start: 20240521, end: 20240521
  7. RITUXIMAB [Suspect]
     Active Substance: RITUXIMAB
     Dosage: 580 MG
     Route: 040
     Dates: start: 20240528, end: 20240528
  8. RITUXIMAB [Suspect]
     Active Substance: RITUXIMAB
     Dosage: 580 MG
     Route: 040
     Dates: start: 20241105, end: 20241105
  9. RITUXIMAB [Suspect]
     Active Substance: RITUXIMAB
     Dosage: 600 MG
     Route: 040
     Dates: start: 20241112, end: 20241112
  10. RITUXIMAB [Suspect]
     Active Substance: RITUXIMAB
     Dosage: 600 MG
     Route: 040
     Dates: start: 20250520, end: 20250520
  11. RITUXIMAB [Suspect]
     Active Substance: RITUXIMAB
     Dosage: UNK
     Route: 040
  12. PREDNISOLONE [Suspect]
     Active Substance: PREDNISOLONE
     Indication: Microscopic polyangiitis
     Dosage: 40 MG
     Route: 048
     Dates: end: 20230728
  13. PREDNISOLONE [Suspect]
     Active Substance: PREDNISOLONE
     Indication: Drug hypersensitivity
     Dosage: 30 MG, QD
     Route: 048
     Dates: start: 20230729, end: 20230814
  14. PREDNISOLONE [Suspect]
     Active Substance: PREDNISOLONE
     Indication: Interstitial lung disease
     Dosage: 25 MG, QD
     Route: 048
     Dates: start: 20230815, end: 20230904
  15. PREDNISOLONE [Suspect]
     Active Substance: PREDNISOLONE
     Dosage: 22.5 MG, QD
     Route: 048
     Dates: start: 20230905, end: 20231002
  16. PREDNISOLONE [Suspect]
     Active Substance: PREDNISOLONE
     Dosage: 20 MG, QD
     Route: 048
     Dates: start: 20231003, end: 20231120
  17. PREDNISOLONE [Suspect]
     Active Substance: PREDNISOLONE
     Dosage: 18 MG, QD
     Route: 048
     Dates: start: 20231121, end: 20240116
  18. PREDNISOLONE [Suspect]
     Active Substance: PREDNISOLONE
     Dosage: 15 MG, QD
     Route: 048
     Dates: start: 20240117, end: 20240214
  19. PREDNISOLONE [Suspect]
     Active Substance: PREDNISOLONE
     Dosage: 14 MG, QD
     Route: 048
     Dates: start: 20240215, end: 20240318
  20. PREDNISOLONE [Suspect]
     Active Substance: PREDNISOLONE
     Dosage: 13 MG, QD
     Route: 048
     Dates: start: 20240319, end: 20240417
  21. PREDNISOLONE [Suspect]
     Active Substance: PREDNISOLONE
     Dosage: 11 MG, QD
     Route: 048
     Dates: start: 20240418, end: 20240520
  22. PREDNISOLONE [Suspect]
     Active Substance: PREDNISOLONE
     Dosage: 10 MG, QD
     Route: 048
     Dates: start: 20240521, end: 20241111
  23. PREDNISOLONE [Suspect]
     Active Substance: PREDNISOLONE
     Dosage: 9 MG, QD
     Route: 048
     Dates: start: 20241112, end: 20241231
  24. PREDNISOLONE [Suspect]
     Active Substance: PREDNISOLONE
     Dosage: 50 MG, QD
     Route: 048
     Dates: start: 20250109, end: 20250117
  25. PREDNISOLONE [Suspect]
     Active Substance: PREDNISOLONE
     Dosage: 40 MG, QD
     Route: 048
     Dates: start: 20250118, end: 20250128
  26. PREDNISOLONE [Suspect]
     Active Substance: PREDNISOLONE
     Dosage: 30 MG, QD
     Route: 048
     Dates: start: 20250129, end: 20250224
  27. PREDNISOLONE [Suspect]
     Active Substance: PREDNISOLONE
     Dosage: 25 MG, QD
     Route: 048
     Dates: start: 20250225, end: 20250310
  28. PREDNISOLONE [Suspect]
     Active Substance: PREDNISOLONE
     Dosage: 20 MG, QD
     Route: 048
     Dates: start: 20250311, end: 20250324
  29. PREDNISOLONE [Suspect]
     Active Substance: PREDNISOLONE
     Dosage: 17.5 MG, QD
     Route: 048
     Dates: start: 20250325, end: 20250407
  30. PREDNISOLONE [Suspect]
     Active Substance: PREDNISOLONE
     Dosage: 15 MG, QD
     Route: 048
     Dates: start: 20250408, end: 20250512
  31. PREDNISOLONE [Suspect]
     Active Substance: PREDNISOLONE
     Dosage: 13 MG, QD
     Route: 048
     Dates: start: 20250513, end: 20250606
  32. PREDNISOLONE [Suspect]
     Active Substance: PREDNISOLONE
     Dosage: 12 MG, QD
     Route: 048
     Dates: start: 20250607, end: 20250707
  33. PREDNISOLONE [Suspect]
     Active Substance: PREDNISOLONE
     Dosage: 11 MG, QD
     Route: 048
     Dates: start: 20250708
  34. PREDNISOLONE [Suspect]
     Active Substance: PREDNISOLONE
     Dosage: 50 MG, QD
     Route: 040
     Dates: start: 20241112, end: 20241112
  35. PREDNISOLONE [Suspect]
     Active Substance: PREDNISOLONE
     Dosage: 50 MG, QD
     Route: 040
     Dates: start: 20250104, end: 20250108
  36. PREDNISOLONE [Suspect]
     Active Substance: PREDNISOLONE
     Dosage: 50 MG, QD
     Route: 040
     Dates: start: 20250520, end: 20250520
  37. PREDNISOLONE [Suspect]
     Active Substance: PREDNISOLONE
     Dosage: PERORAL MEDICINE
     Route: 048
     Dates: end: 20230728
  38. PREDNISOLONE [Suspect]
     Active Substance: PREDNISOLONE
     Dosage: PERORAL MEDICINE
     Route: 048
     Dates: start: 20230729, end: 20230814
  39. PREDNISOLONE [Suspect]
     Active Substance: PREDNISOLONE
     Dosage: PERORAL MEDICINE
     Route: 048
     Dates: start: 20230815, end: 20230904
  40. PREDNISOLONE [Suspect]
     Active Substance: PREDNISOLONE
     Dosage: PERORAL MEDICINE
     Route: 048
     Dates: start: 20230905, end: 20231002
  41. PREDNISOLONE [Suspect]
     Active Substance: PREDNISOLONE
     Dosage: PERORAL MEDICINE
     Route: 048
     Dates: start: 20231003, end: 20231120
  42. PREDNISOLONE [Suspect]
     Active Substance: PREDNISOLONE
     Dosage: PERORAL MEDICINE
     Route: 048
     Dates: start: 20231121, end: 20240116
  43. PREDNISOLONE [Suspect]
     Active Substance: PREDNISOLONE
     Dosage: PERORAL MEDICINE
     Route: 048
     Dates: start: 20240117
  44. PREDNISOLONE [Suspect]
     Active Substance: PREDNISOLONE
     Dosage: PERORAL MEDICINE
     Route: 048
     Dates: start: 20240215, end: 20240318
  45. PREDNISOLONE [Suspect]
     Active Substance: PREDNISOLONE
     Dosage: PERORAL MEDICINE
     Route: 048
     Dates: start: 20240319, end: 20240417
  46. PREDNISOLONE [Suspect]
     Active Substance: PREDNISOLONE
     Dosage: PERORAL MEDICINE
     Route: 048
     Dates: start: 20240418, end: 20240520
  47. PREDNISOLONE [Suspect]
     Active Substance: PREDNISOLONE
     Dosage: PERORAL MEDICINE
     Route: 048
     Dates: start: 20240521
  48. SOLU-CORTEF [Suspect]
     Active Substance: HYDROCORTISONE SODIUM SUCCINATE
     Indication: Drug hypersensitivity
     Dosage: 200 MG
     Route: 040
     Dates: start: 20231026, end: 20231026
  49. SOLU-CORTEF [Suspect]
     Active Substance: HYDROCORTISONE SODIUM SUCCINATE
     Indication: Drug hypersensitivity
     Dosage: 200 MG, QD
     Route: 040
     Dates: start: 20231102, end: 20231102
  50. SOLU-CORTEF [Suspect]
     Active Substance: HYDROCORTISONE SODIUM SUCCINATE
     Dosage: 200 MG, QD
     Route: 040
     Dates: start: 20240521, end: 20240521
  51. SOLU-CORTEF [Suspect]
     Active Substance: HYDROCORTISONE SODIUM SUCCINATE
     Dosage: 200 MG, QD
     Route: 040
     Dates: start: 20240528, end: 20240528
  52. SOLU-CORTEF [Suspect]
     Active Substance: HYDROCORTISONE SODIUM SUCCINATE
     Dosage: 200 MG, QD
     Route: 040
     Dates: start: 20241105, end: 20241105
  53. SOLU-CORTEF [Suspect]
     Active Substance: HYDROCORTISONE SODIUM SUCCINATE
     Dosage: 200,MG,QD
     Route: 040
     Dates: start: 20231026, end: 20231026
  54. SULFAMETHOXAZOLE\TRIMETHOPRIM [Suspect]
     Active Substance: SULFAMETHOXAZOLE\TRIMETHOPRIM
     Indication: Antifungal prophylaxis
     Dosage: 1440 MG
     Route: 048
     Dates: end: 20240923
  55. SULFAMETHOXAZOLE\TRIMETHOPRIM [Suspect]
     Active Substance: SULFAMETHOXAZOLE\TRIMETHOPRIM
     Indication: Antifungal prophylaxis
     Dosage: PERORAL MEDICINE
     Route: 048
  56. ATORVASTATIN CALCIUM TRIHYDRATE [Suspect]
     Active Substance: ATORVASTATIN CALCIUM TRIHYDRATE
     Indication: Low density lipoprotein increased
     Dosage: UNK
     Route: 048
     Dates: end: 20240923
  57. RITUXIMAB [Concomitant]
     Active Substance: RITUXIMAB
     Indication: Microscopic polyangiitis
     Dosage: UNK
     Route: 041
  58. RITUXIMAB [Concomitant]
     Active Substance: RITUXIMAB
     Dosage: 580 MG
     Route: 040
     Dates: start: 20231026, end: 20231026
  59. RITUXIMAB [Concomitant]
     Active Substance: RITUXIMAB
     Dosage: 580 MG
     Route: 040
     Dates: start: 20231102, end: 20231102
  60. RITUXIMAB [Concomitant]
     Active Substance: RITUXIMAB
     Dosage: 580 MG
     Route: 040
     Dates: start: 20240521, end: 20240521
  61. RITUXIMAB [Concomitant]
     Active Substance: RITUXIMAB
     Dosage: 580 MG
     Route: 040
     Dates: start: 20240528, end: 20240528
  62. ESOMEPRAZOLE [Concomitant]
     Active Substance: ESOMEPRAZOLE
     Indication: Prophylaxis
     Route: 048
  63. ALFACALCIDOL [Concomitant]
     Active Substance: ALFACALCIDOL
     Indication: Prophylaxis
     Dosage: UNK
     Route: 048
  64. BIO-THREE [Concomitant]
     Active Substance: HERBALS
     Dosage: POWDER MEDICINE
     Route: 048
     Dates: end: 20240520
  65. BIO-THREE [Concomitant]
     Active Substance: HERBALS
     Dosage: UNK
     Route: 048
  66. MAGNESIUM OXIDE [Concomitant]
     Active Substance: MAGNESIUM OXIDE
     Dosage: UNK
     Route: 048
     Dates: end: 20240520
  67. MAGNESIUM OXIDE [Concomitant]
     Active Substance: MAGNESIUM OXIDE
     Dosage: UNK
     Route: 048
  68. AMITIZA [Concomitant]
     Active Substance: LUBIPROSTONE
     Dosage: UNK
     Route: 048
     Dates: end: 20240520
  69. ALENDRONATE [Concomitant]
     Active Substance: ALENDRONATE SODIUM
     Indication: Prophylaxis
     Dosage: UNK
     Route: 048
     Dates: end: 20231225
  70. ALENDRONATE [Concomitant]
     Active Substance: ALENDRONATE SODIUM
     Dosage: UNK
     Route: 048
     Dates: start: 20231230
  71. SODIUM CHLORIDE [Concomitant]
     Active Substance: SODIUM CHLORIDE
     Dosage: UNK,UNK,UNK
     Route: 040
     Dates: start: 20231026, end: 20231026
  72. SODIUM CHLORIDE [Concomitant]
     Active Substance: SODIUM CHLORIDE
     Dosage: UNK,UNK,UNK
     Route: 040
     Dates: start: 20231102, end: 20231102
  73. SODIUM CHLORIDE [Concomitant]
     Active Substance: SODIUM CHLORIDE
     Dosage: UNK,UNK,UNK
     Route: 040
     Dates: start: 20231230, end: 20231230
  74. SODIUM CHLORIDE [Concomitant]
     Active Substance: SODIUM CHLORIDE
     Dosage: UNK,UNK,UNK
     Route: 040
     Dates: start: 20231231, end: 20240101
  75. SODIUM CHLORIDE [Concomitant]
     Active Substance: SODIUM CHLORIDE
     Dosage: UNK,UNK,UNK
     Route: 040
     Dates: start: 20240102, end: 20240103
  76. SODIUM CHLORIDE [Concomitant]
     Active Substance: SODIUM CHLORIDE
     Dosage: UNK,UNK,UNK
     Route: 040
     Dates: start: 20240104, end: 20240104
  77. SODIUM CHLORIDE [Concomitant]
     Active Substance: SODIUM CHLORIDE
     Dosage: UNK,UNK,UNK
     Route: 040
     Dates: start: 20240105, end: 20240106
  78. SODIUM CHLORIDE [Concomitant]
     Active Substance: SODIUM CHLORIDE
     Dosage: UNK,UNK,UNK
     Route: 040
     Dates: start: 20240107, end: 20240107
  79. SODIUM CHLORIDE [Concomitant]
     Active Substance: SODIUM CHLORIDE
     Dosage: UNK,UNK,UNK
     Route: 040
     Dates: start: 20240108, end: 20240111
  80. SODIUM CHLORIDE [Concomitant]
     Active Substance: SODIUM CHLORIDE
     Dosage: UNK,UNK,UNK
     Route: 040
     Dates: start: 20240112, end: 20240112
  81. SODIUM CHLORIDE [Concomitant]
     Active Substance: SODIUM CHLORIDE
     Dosage: UNK,UNK,UNK
     Route: 040
     Dates: start: 20240113, end: 20240113
  82. CHLORPHENIRAMINE MALEATE [Concomitant]
     Active Substance: CHLORPHENIRAMINE MALEATE
     Dosage: UNK,UNK,UNK
     Route: 040
     Dates: start: 20231026, end: 20231026
  83. CHLORPHENIRAMINE MALEATE [Concomitant]
     Active Substance: CHLORPHENIRAMINE MALEATE
     Dosage: UNK,UNK,UNK
     Route: 040
     Dates: start: 20231102, end: 20231102
  84. CHLORPHENIRAMINE MALEATE [Concomitant]
     Active Substance: CHLORPHENIRAMINE MALEATE
     Dosage: UNK,UNK,UNK
     Route: 040
     Dates: start: 20240521, end: 20240521
  85. CHLORPHENIRAMINE MALEATE [Concomitant]
     Active Substance: CHLORPHENIRAMINE MALEATE
     Dosage: UNK,UNK,UNK
     Route: 040
     Dates: start: 20240528, end: 20240528
  86. CALCIUM LACTATE PENTAHYDRATE [Concomitant]
     Active Substance: CALCIUM LACTATE PENTAHYDRATE
     Indication: Cataract
     Dosage: PERORAL MEDICINE
     Route: 048
     Dates: start: 20231221, end: 20231226
  87. DICLOFENAC SODIUM [Concomitant]
     Active Substance: DICLOFENAC SODIUM
     Indication: Cataract
     Dosage: UNK,UNK,UNK (OPHTHALMIC)
     Dates: start: 20231227, end: 20240120
  88. LEVOFLOXACIN HEMIHYDRATE [Concomitant]
     Active Substance: LEVOFLOXACIN
     Indication: Cataract
     Dosage: UNK,UNK,UNK(OPHTHALMIC)
     Dates: start: 20231227, end: 20240120
  89. LEVOFLOXACIN HEMIHYDRATE [Concomitant]
     Active Substance: LEVOFLOXACIN
     Dosage: UNK,UNK,UNK (OPHTHALMIC)
     Dates: start: 20240121, end: 20240214
  90. BETAMETHASONE SODIUM PHOSPHATE [Concomitant]
     Active Substance: BETAMETHASONE SODIUM PHOSPHATE
     Indication: Cataract
     Dosage: UNK,UNK,UNK
     Dates: start: 20231227, end: 20240214
  91. ISOTONIC SODIUM CHLORIDE SOLUTION [Concomitant]
     Active Substance: SODIUM CHLORIDE
     Dosage: UNK,UNK,UNK
     Route: 040
     Dates: start: 20231229, end: 20231229
  92. PETROLATUM [Concomitant]
     Active Substance: PETROLATUM
     Indication: Dry skin
     Dosage: UNK,UNK,UNK (CUTANEOUS )
     Dates: start: 20231230, end: 20240115
  93. XYLOCAINE [Concomitant]
     Active Substance: LIDOCAINE HYDROCHLORIDE
     Indication: Premedication
     Dosage: UNK,UNK,UNK
     Route: 040
     Dates: start: 20231231, end: 20231231
  94. BROMFENAC SODIUM [Concomitant]
     Active Substance: BROMFENAC SODIUM
     Indication: Cataract
     Dosage: UNK,UNK,UNK(OPHTHALMIC)
     Dates: start: 20240121, end: 20240214
  95. CALONAL [Concomitant]
     Active Substance: ACETAMINOPHEN
     Dosage: UNK
     Route: 048
     Dates: start: 20231026, end: 20231026
  96. CALONAL [Concomitant]
     Active Substance: ACETAMINOPHEN
     Dosage: UNK
     Route: 048
     Dates: start: 20231102, end: 20231102
  97. CALONAL [Concomitant]
     Active Substance: ACETAMINOPHEN
     Dosage: UNK
     Route: 048
     Dates: start: 20240521, end: 20240521
  98. CALONAL [Concomitant]
     Active Substance: ACETAMINOPHEN
     Dosage: UNK
     Route: 048
     Dates: start: 20240528, end: 20240528
  99. CALONAL [Concomitant]
     Active Substance: ACETAMINOPHEN
     Dosage: UNK
     Route: 048
     Dates: start: 20241105, end: 20241105
  100. CALONAL [Concomitant]
     Active Substance: ACETAMINOPHEN
     Dosage: UNK
     Route: 048
     Dates: start: 20241112, end: 20241112
  101. CALONAL [Concomitant]
     Active Substance: ACETAMINOPHEN
     Dosage: UNK
     Route: 048
     Dates: start: 20250520, end: 20250520
  102. PENTAMIDINE ISETHIONATE [Concomitant]
     Active Substance: PENTAMIDINE ISETHIONATE
     Indication: Antifungal prophylaxis
     Dosage: 300 MG
     Dates: start: 20241008, end: 20241008
  103. PENTAMIDINE ISETHIONATE [Concomitant]
     Active Substance: PENTAMIDINE ISETHIONATE
     Indication: Antifungal prophylaxis
  104. FUNGIZONE [Concomitant]
     Active Substance: AMPHOTERICIN B
     Indication: Antifungal prophylaxis
     Dosage: 300 MG
     Route: 048
     Dates: start: 20250114, end: 20250124
  105. PENTAMIDINE [Concomitant]
     Active Substance: PENTAMIDINE
     Indication: Antifungal prophylaxis
     Dosage: 300 MG
     Dates: start: 20250205, end: 20250205
  106. PENTAMIDINE [Concomitant]
     Active Substance: PENTAMIDINE
     Indication: Antifungal prophylaxis
     Dosage: 300 MG
     Dates: start: 20250408, end: 20250513
  107. PENTAMIDINE [Concomitant]
     Active Substance: PENTAMIDINE
     Dosage: 300 MG
     Dates: start: 20250610, end: 20250610
  108. PENTAMIDINE [Concomitant]
     Active Substance: PENTAMIDINE
     Dosage: 300 MG
     Dates: start: 20250708
  109. TENELIGLIPTIN HYDROBROMIDE HYDRATE [Concomitant]
     Active Substance: TENELIGLIPTIN HYDROBROMIDE HYDRATE
     Route: 048
     Dates: start: 20250108, end: 20250117
  110. POLARAMINE [Concomitant]
     Active Substance: DEXCHLORPHENIRAMINE MALEATE
     Route: 040
     Dates: start: 20250520, end: 20250520
  111. PROCATEROL HYDROCHLORIDE [Concomitant]
     Active Substance: PROCATEROL HYDROCHLORIDE
     Dates: start: 20241008, end: 20241008
  112. PROCATEROL HYDROCHLORIDE [Concomitant]
     Active Substance: PROCATEROL HYDROCHLORIDE
     Dosage: UNK
     Dates: start: 20250205, end: 20250205
  113. PROCATEROL HYDROCHLORIDE [Concomitant]
     Active Substance: PROCATEROL HYDROCHLORIDE
     Dosage: UNK
     Dates: start: 20250408, end: 20250408
  114. PROCATEROL HYDROCHLORIDE [Concomitant]
     Active Substance: PROCATEROL HYDROCHLORIDE
     Dosage: UNK
     Dates: start: 20250513, end: 20250513
  115. PROCATEROL HYDROCHLORIDE [Concomitant]
     Active Substance: PROCATEROL HYDROCHLORIDE
     Dosage: UNK
     Dates: start: 20250610, end: 20250610
  116. PROCATEROL HYDROCHLORIDE [Concomitant]
     Active Substance: PROCATEROL HYDROCHLORIDE
     Dosage: UNK
     Dates: start: 20250708, end: 20250708
  117. KENKETU GLOVENIN-I [Concomitant]
     Active Substance: HUMAN IMMUNOGLOBULIN G
     Route: 040
     Dates: start: 20250111, end: 20250111
  118. KENKETU GLOVENIN-I [Concomitant]
     Active Substance: HUMAN IMMUNOGLOBULIN G
     Dosage: UNK
     Route: 040
     Dates: start: 20250325, end: 20250325

REACTIONS (19)
  - Neuropathy peripheral [Recovering/Resolving]
  - Interstitial lung disease [Recovering/Resolving]
  - Deep vein thrombosis [Recovering/Resolving]
  - Bacteraemia [Recovering/Resolving]
  - Abscess oral [Recovering/Resolving]
  - Grip strength decreased [Recovering/Resolving]
  - Gait disturbance [Recovering/Resolving]
  - Hypoaesthesia [Recovering/Resolving]
  - Dyspnoea [Recovering/Resolving]
  - Pyrexia [Recovering/Resolving]
  - Oxygen saturation decreased [Recovering/Resolving]
  - Swelling face [Recovering/Resolving]
  - Oxygen saturation decreased [Recovering/Resolving]
  - Pyrexia [Recovering/Resolving]
  - Dyspnoea [Recovering/Resolving]
  - Hypokalaemia [Recovered/Resolved]
  - Platelet count decreased [Recovered/Resolved]
  - Chest pain [Unknown]
  - Low density lipoprotein increased [Unknown]

NARRATIVE: CASE EVENT DATE: 20231219
